FAERS Safety Report 5255369-5 (Version None)
Quarter: 2007Q1

REPORT INFORMATION
  Report Type: 
  Country: None (occurrence: None)
  Receive Date: 20070228
  Receipt Date: 20070217
  Transmission Date: 20070707
  Serious: Yes (Death, Hospitalization, Other)
  Sender: FDA-Public Use
  Company Number: 2007S1000153

PATIENT
  Age: 18 Year
  Sex: Female
  Weight: 47 kg

DRUGS (5)
  1. CUBICIN [Suspect]
     Indication: BREAST CELLULITIS
     Dosage: 200 MG; X1; IV
     Route: 042
     Dates: start: 20070216, end: 20070216
  2. BACTRIM [Concomitant]
  3. PROMETHAZINE [Concomitant]
  4. ORAL CONTRACEPTIVE NOS [Concomitant]
  5. ACETAMINOPHEN [Concomitant]

REACTIONS (13)
  - AGITATION [None]
  - BRAIN OEDEMA [None]
  - CIRCULATORY COLLAPSE [None]
  - CONFUSIONAL STATE [None]
  - DISSEMINATED INTRAVASCULAR COAGULATION [None]
  - ELECTROENCEPHALOGRAM ABNORMAL [None]
  - HEPATIC FAILURE [None]
  - HYPOTENSION [None]
  - LOSS OF CONSCIOUSNESS [None]
  - MULTI-ORGAN FAILURE [None]
  - RENAL FAILURE [None]
  - SEPSIS [None]
  - TOXIC SHOCK SYNDROME [None]
